FAERS Safety Report 23887159 (Version 1)
Quarter: 2024Q2

REPORT INFORMATION
  Report Type: Spontaneous
  Country: CA (occurrence: CA)
  Receive Date: 20240523
  Receipt Date: 20240523
  Transmission Date: 20240715
  Serious: Yes (Other)
  Sender: FDA-Public Use
  Company Number: CA-HALEON-2174866

PATIENT
  Age: 63 Year
  Sex: Female

DRUGS (14)
  1. NICOTINE [Suspect]
     Active Substance: NICOTINE
     Indication: Product used for unknown indication
     Route: 062
  2. XOLAIR [Suspect]
     Active Substance: OMALIZUMAB
     Indication: Chronic spontaneous urticaria
     Route: 065
  3. XOLAIR [Suspect]
     Active Substance: OMALIZUMAB
     Route: 065
  4. XOLAIR [Suspect]
     Active Substance: OMALIZUMAB
     Route: 065
  5. XOLAIR [Suspect]
     Active Substance: OMALIZUMAB
     Route: 058
  6. XOLAIR [Suspect]
     Active Substance: OMALIZUMAB
     Route: 065
  7. XOLAIR [Suspect]
     Active Substance: OMALIZUMAB
     Route: 058
  8. XOLAIR [Suspect]
     Active Substance: OMALIZUMAB
     Route: 065
  9. XOLAIR [Suspect]
     Active Substance: OMALIZUMAB
     Route: 065
  10. XOLAIR [Suspect]
     Active Substance: OMALIZUMAB
     Route: 058
  11. XOLAIR [Suspect]
     Active Substance: OMALIZUMAB
     Route: 065
  12. XOLAIR [Suspect]
     Active Substance: OMALIZUMAB
     Route: 065
  13. XOLAIR [Suspect]
     Active Substance: OMALIZUMAB
     Route: 058
  14. XOLAIR [Suspect]
     Active Substance: OMALIZUMAB
     Route: 065

REACTIONS (32)
  - Alopecia [Unknown]
  - Haemorrhage [Unknown]
  - Application site reaction [Unknown]
  - Dyspnoea [Unknown]
  - Drug ineffective [Unknown]
  - Depression [Unknown]
  - Chronic spontaneous urticaria [Unknown]
  - Erythema [Unknown]
  - Headache [Unknown]
  - Dyspnoea exertional [Unknown]
  - Hepatic enzyme increased [Unknown]
  - Inappropriate schedule of product administration [Unknown]
  - Incorrect dose administered [Unknown]
  - Insomnia [Unknown]
  - Intervertebral disc protrusion [Unknown]
  - Malaise [Unknown]
  - Middle insomnia [Unknown]
  - Muscular weakness [Unknown]
  - Pain [Unknown]
  - Paraesthesia [Unknown]
  - Primary biliary cholangitis [Unknown]
  - Product dose omission issue [Unknown]
  - Pruritus [Unknown]
  - Scratch [Unknown]
  - Skin burning sensation [Unknown]
  - Skin lesion [Unknown]
  - Skin plaque [Unknown]
  - Spinal meningeal cyst [Unknown]
  - Stress [Unknown]
  - Tachycardia [Unknown]
  - Urticaria [Unknown]
  - Wrong technique in product usage process [Unknown]
